FAERS Safety Report 4658942-8 (Version None)
Quarter: 2005Q2

REPORT INFORMATION
  Report Type: 
  Country: None (occurrence: None)
  Receive Date: 20050509
  Receipt Date: 20500425
  Transmission Date: 20051028
  Serious: Yes (Hospitalization)
  Sender: FDA-Public Use
  Company Number: 04P-013-0275763-00

PATIENT
  Age: 74 Year
  Sex: Female
  Weight: 42 kg

DRUGS (9)
  1. HUMIRA [Suspect]
     Indication: RHEUMATOID ARTHRITIS
     Dosage: 40 MG, 1 IN 2 WK, SUBCUTANEOUS
     Route: 058
     Dates: start: 20040128, end: 20040519
  2. METHOTREXATE [Concomitant]
  3. GLUCADOL [Concomitant]
  4. STEOVIT D3 [Concomitant]
  5. CELECOXIB [Concomitant]
  6. OMNIBIONTA [Concomitant]
  7. LEVOTHYROXINE SODIUM [Concomitant]
  8. COMMERCIAL HUMIRA [Concomitant]
  9. FOLIC ACID [Concomitant]

REACTIONS (8)
  - ELECTROCARDIOGRAM POOR R-WAVE PROGRESSION [None]
  - HYPOALBUMINAEMIA [None]
  - INFLAMMATION [None]
  - LUNG INFILTRATION [None]
  - MYOCARDIAL INFARCTION [None]
  - OEDEMA PERIPHERAL [None]
  - SPLENOMEGALY [None]
  - VIRAL INFECTION [None]
